FAERS Safety Report 11117258 (Version 3)
Quarter: 2015Q2

REPORT INFORMATION
  Report Type: Spontaneous
  Country: NZ (occurrence: NZ)
  Receive Date: 20150515
  Receipt Date: 20150625
  Transmission Date: 20150821
  Serious: Yes (Hospitalization)
  Sender: FDA-Public Use
  Company Number: AU-009507513-1505AUS005843

PATIENT
  Sex: Female

DRUGS (2)
  1. ONCOTICE [Suspect]
     Active Substance: BACILLUS CALMETTE-GUERIN SUBSTRAIN TICE LIVE ANTIGEN
     Dosage: UNK
  2. ONCOTICE [Suspect]
     Active Substance: BACILLUS CALMETTE-GUERIN SUBSTRAIN TICE LIVE ANTIGEN
     Indication: BLADDER CANCER
     Dosage: MAINTENANCE THEARPY, 2ND OR 3RD CYCLE, A THIRD OF STANDARD DOSE
     Dates: start: 201504, end: 201504

REACTIONS (10)
  - Immune system disorder [Not Recovered/Not Resolved]
  - Monocyte count increased [Not Recovered/Not Resolved]
  - Night sweats [Not Recovered/Not Resolved]
  - Hepatitis [Recovered/Resolved]
  - Arthralgia [Recovered/Resolved]
  - Pyrexia [Not Recovered/Not Resolved]
  - Cytomegalovirus infection [Unknown]
  - Lymphocyte count increased [Not Recovered/Not Resolved]
  - Drug hypersensitivity [Recovered/Resolved]
  - Headache [Not Recovered/Not Resolved]

NARRATIVE: CASE EVENT DATE: 2015
